FAERS Safety Report 5532113-5 (Version None)
Quarter: 2007Q4

REPORT INFORMATION
  Report Type: 
  Country: None (occurrence: None)
  Receive Date: 20071203
  Receipt Date: 20071119
  Transmission Date: 20080405
  Serious: Yes (Other)
  Sender: FDA-Public Use
  Company Number: DE-BAYER-DE-2007-022758

PATIENT
  Age: 39 Year
  Sex: Female
  Weight: 68 kg

DRUGS (1)
  1. MIRENA [Suspect]
     Indication: DRUG USE FOR UNKNOWN INDICATION
     Route: 015
     Dates: start: 20020401, end: 20070401

REACTIONS (5)
  - ABDOMINAL PAIN LOWER [None]
  - CYST [None]
  - METRORRHAGIA [None]
  - SALPINGITIS [None]
  - UTERINE MALPOSITION [None]
